FAERS Safety Report 4484452-7 (Version None)
Quarter: 2004Q3

REPORT INFORMATION
  Report Type: 
  Country: None (occurrence: None)
  Receive Date: 20040921
  Receipt Date: 20040112
  Transmission Date: 20050211
  Serious: Yes (Hospitalization)
  Sender: FDA-Public Use
  Company Number: 163-20785-04010323

PATIENT
  Age: 79 Year
  Sex: Female

DRUGS (1)
  1. THALOMID [Suspect]
     Dosage: 50-100 MG, DAILY, ORAL
     Route: 048
     Dates: start: 20030717, end: 20030901

REACTIONS (1)
  - CONVULSION [None]
